FAERS Safety Report 19031875 (Version 2)
Quarter: 2021Q2

REPORT INFORMATION
  Report Type: Report from Study
  Country: AU (occurrence: AU)
  Receive Date: 20210319
  Receipt Date: 20210521
  Transmission Date: 20210717
  Serious: Yes (Hospitalization)
  Sender: FDA-Public Use
  Company Number: AU-BIOGEN-2021BI00989360

PATIENT
  Age: 40 Year
  Sex: Female

DRUGS (2)
  1. CBD OIL [Suspect]
     Active Substance: CANNABIDIOL\HERBALS
     Indication: PRODUCT USED FOR UNKNOWN INDICATION
     Route: 065
     Dates: start: 20210304
  2. TYSABRI [Suspect]
     Active Substance: NATALIZUMAB
     Indication: MULTIPLE SCLEROSIS
     Route: 042
     Dates: start: 20201006, end: 202011

REACTIONS (8)
  - Burning sensation [Recovered/Resolved]
  - Motor dysfunction [Recovered/Resolved]
  - Tremor [Recovered/Resolved]
  - Accidental overdose [Unknown]
  - Headache [Recovered/Resolved]
  - Tunnel vision [Recovered/Resolved]
  - Vomiting projectile [Recovered/Resolved]
  - Binocular eye movement disorder [Recovered/Resolved]

NARRATIVE: CASE EVENT DATE: 20210304
